FAERS Safety Report 24345071 (Version 1)
Quarter: 2024Q3

REPORT INFORMATION
  Report Type: Spontaneous
  Country: US (occurrence: US)
  Receive Date: 20240920
  Receipt Date: 20240920
  Transmission Date: 20241016
  Serious: Yes (Other)
  Sender: BIOVITRUM
  Company Number: US-BIOVITRUM-2024-US-012080

PATIENT
  Age: 15 Month
  Sex: Female

DRUGS (1)
  1. ANAKINRA [Suspect]
     Active Substance: ANAKINRA
     Indication: Still^s disease

REACTIONS (4)
  - Off label use [Unknown]
  - Haemophagocytic lymphohistiocytosis [Unknown]
  - Still^s disease [Unknown]
  - Lung disorder [Unknown]
